FAERS Safety Report 15227116 (Version 1)
Quarter: 2018Q3

REPORT INFORMATION
  Report Type: Spontaneous
  Country: US (occurrence: US)
  Receive Date: 20180801
  Receipt Date: 20180801
  Transmission Date: 20181010
  Serious: Yes (Death, Other)
  Sender: FDA-Public Use
  Company Number: US-ROCHE-2161867

PATIENT
  Age: 38 Year
  Sex: Male

DRUGS (8)
  1. PRADAXA [Suspect]
     Active Substance: DABIGATRAN ETEXILATE MESYLATE
     Indication: PULMONARY EMBOLISM
  2. PRADAXA [Suspect]
     Active Substance: DABIGATRAN ETEXILATE MESYLATE
     Indication: INTRACARDIAC THROMBUS
  3. PRADAXA [Suspect]
     Active Substance: DABIGATRAN ETEXILATE MESYLATE
     Indication: TESTICULAR INFARCTION
  4. ACTILYSE [Suspect]
     Active Substance: ALTEPLASE
     Indication: INTRACARDIAC THROMBUS
  5. ACTILYSE [Suspect]
     Active Substance: ALTEPLASE
     Indication: TESTICULAR INFARCTION
  6. ACTILYSE [Suspect]
     Active Substance: ALTEPLASE
     Indication: PULMONARY EMBOLISM
  7. ACTILYSE [Suspect]
     Active Substance: ALTEPLASE
     Indication: DEEP VEIN THROMBOSIS
     Route: 065
  8. PRADAXA [Suspect]
     Active Substance: DABIGATRAN ETEXILATE MESYLATE
     Indication: DEEP VEIN THROMBOSIS
     Route: 065

REACTIONS (7)
  - Haemoptysis [Unknown]
  - Epistaxis [Unknown]
  - Hypoxia [Unknown]
  - Respiratory failure [Fatal]
  - Haemorrhagic anaemia [Fatal]
  - Pulseless electrical activity [Fatal]
  - Pulmonary alveolar haemorrhage [Unknown]
